FAERS Safety Report 23931269 (Version 2)
Quarter: 2024Q3

REPORT INFORMATION
  Report Type: Spontaneous
  Country: US (occurrence: US)
  Receive Date: 20240603
  Receipt Date: 20240709
  Transmission Date: 20241017
  Serious: No
  Sender: ROCHE
  Company Number: US-ROCHE-3569456

PATIENT
  Age: 50 Year
  Sex: Female
  Weight: 81.65 kg

DRUGS (19)
  1. OCREVUS [Suspect]
     Active Substance: OCRELIZUMAB
     Indication: Multiple sclerosis
     Route: 041
     Dates: start: 20230223
  2. BENADRYL [Suspect]
     Active Substance: DIPHENHYDRAMINE HYDROCHLORIDE
     Indication: Product used for unknown indication
     Route: 065
  3. ARMOUR THYROID [Concomitant]
     Active Substance: THYROID, PORCINE
     Indication: Hypothyroidism
     Route: 048
  4. PREDNISONE [Concomitant]
     Active Substance: PREDNISONE
     Indication: Psoriatic arthropathy
     Route: 048
     Dates: start: 2023
  5. TOPAMAX [Concomitant]
     Active Substance: TOPIRAMATE
  6. ARAVA [Concomitant]
     Active Substance: LEFLUNOMIDE
  7. TIZANIDINE [Concomitant]
     Active Substance: TIZANIDINE
  8. COMPAZINE [Concomitant]
     Active Substance: PROCHLORPERAZINE MALEATE
  9. BUPROPION [Concomitant]
     Active Substance: BUPROPION
  10. ERGOCALCIFEROL [Concomitant]
     Active Substance: ERGOCALCIFEROL
  11. MENAQUINONE 6 [Concomitant]
     Active Substance: MENAQUINONE 6
  12. HERBALS [Concomitant]
     Active Substance: HERBALS
  13. COENZYME Q10 [Concomitant]
     Active Substance: DIETARY SUPPLEMENT\UBIDECARENONE
  14. VITAMIN B COMPLEX [Concomitant]
     Active Substance: CYANOCOBALAMIN\DEXPANTHENOL\NIACINAMIDE\PYRIDOXINE HYDROCHLORIDE\RIBOFLAVIN 5^-PHOSPHATE SODIUM\THIA
  15. FOLIC ACID [Concomitant]
     Active Substance: FOLIC ACID
  16. MINERALS\VITAMINS [Concomitant]
     Active Substance: MINERALS\VITAMINS
  17. GLUCOPHAGE [Concomitant]
     Active Substance: METFORMIN HYDROCHLORIDE
  18. TYLENOL [Concomitant]
     Active Substance: ACETAMINOPHEN
  19. HERBALS\TURMERIC [Concomitant]
     Active Substance: HERBALS\TURMERIC

REACTIONS (22)
  - Throat irritation [Recovered/Resolved]
  - Hypoacusis [Not Recovered/Not Resolved]
  - Burning sensation [Recovered/Resolved]
  - Chest pain [Recovered/Resolved]
  - Memory impairment [Not Recovered/Not Resolved]
  - Depression [Recovering/Resolving]
  - Trigeminal neuralgia [Not Recovered/Not Resolved]
  - Visual impairment [Not Recovered/Not Resolved]
  - Infusion site discomfort [Not Recovered/Not Resolved]
  - Onycholysis [Not Recovered/Not Resolved]
  - Onychoclasis [Not Recovered/Not Resolved]
  - Nail disorder [Not Recovered/Not Resolved]
  - Menopause [Not Recovered/Not Resolved]
  - Fallopian tube cyst [Not Recovered/Not Resolved]
  - Cervix disorder [Not Recovered/Not Resolved]
  - Uterine prolapse [Not Recovered/Not Resolved]
  - Coital bleeding [Not Recovered/Not Resolved]
  - Neutropenia [Recovering/Resolving]
  - Loose tooth [Not Recovered/Not Resolved]
  - Muscular weakness [Not Recovered/Not Resolved]
  - Psoriatic arthropathy [Not Recovered/Not Resolved]
  - Multiple sclerosis [Not Recovered/Not Resolved]

NARRATIVE: CASE EVENT DATE: 20230223
